FAERS Safety Report 18014390 (Version 1)
Quarter: 2020Q3

REPORT INFORMATION
  Report Type: Spontaneous
  Country: CN (occurrence: CN)
  Receive Date: 20200713
  Receipt Date: 20200713
  Transmission Date: 20201103
  Serious: Yes (Hospitalization, Other)
  Sender: FDA-Public Use
  Company Number: CN-MICRO LABS LIMITED-ML2020-02026

PATIENT
  Age: 34 Year
  Sex: Male

DRUGS (7)
  1. NIFEDIPINE. [Concomitant]
     Active Substance: NIFEDIPINE
     Indication: HYPERTENSION
     Dosage: CONTROLLED RELEASE TABLET
     Route: 048
  2. SODIUM CHLORIDE. [Concomitant]
     Active Substance: SODIUM CHLORIDE
     Dosage: CLINDAMYCIN 0.6 G + NORMAL SALINE 250 ML
  3. CLINDAMYCIN. [Suspect]
     Active Substance: CLINDAMYCIN
     Indication: INFECTION
     Dosage: CLINDAMYCIN 0.6 G + NORMAL SALINE 250 ML
  4. METOPROLOL TARTRATE. [Concomitant]
     Active Substance: METOPROLOL TARTRATE
     Indication: HYPERTENSION
     Route: 048
  5. SODIUM CHLORIDE. [Concomitant]
     Active Substance: SODIUM CHLORIDE
     Dosage: DEXAMETHASONE 5MG, VITAMIN C 200 MG + NORMAL SALINE 250 ML
  6. DEXAMETHASONE. [Concomitant]
     Active Substance: DEXAMETHASONE
     Dosage: DEXAMETHASONE 5MG, VITAMIN C 200 MG + NORMAL SALINE 250 ML
  7. VITAMIN C [Concomitant]
     Active Substance: ASCORBIC ACID
     Dosage: DEXAMETHASONE 5MG, VITAMIN C 200 MG + NORMAL SALINE 250 ML

REACTIONS (1)
  - Encephalopathy [Recovered/Resolved]
